FAERS Safety Report 11062604 (Version 2)
Quarter: 2015Q2

REPORT INFORMATION
  Report Type: Spontaneous
  Country: HR (occurrence: HR)
  Receive Date: 20150424
  Receipt Date: 20150601
  Transmission Date: 20150821
  Serious: Yes (Hospitalization, Other)
  Sender: FDA-Public Use
  Company Number: PHHY2015HR043128

PATIENT
  Age: 50 Year
  Sex: Female

DRUGS (2)
  1. TASIGNA [Suspect]
     Active Substance: NILOTINIB
     Dosage: 600 MG, QD
     Route: 048
     Dates: end: 201503
  2. TASIGNA [Suspect]
     Active Substance: NILOTINIB
     Indication: CHRONIC MYELOID LEUKAEMIA
     Dosage: 800 MG, UNK
     Route: 048
     Dates: start: 201302

REACTIONS (7)
  - Rash [Recovering/Resolving]
  - Coronary artery occlusion [Recovered/Resolved]
  - Arterial stenosis [Unknown]
  - Blood cholesterol increased [Recovering/Resolving]
  - Diabetes mellitus [Recovering/Resolving]
  - Chest pain [Unknown]
  - Dry skin [Recovered/Resolved]

NARRATIVE: CASE EVENT DATE: 2013
